FAERS Safety Report 16332984 (Version 3)
Quarter: 2019Q3

REPORT INFORMATION
  Report Type: Spontaneous
  Country: US (occurrence: US)
  Receive Date: 20190520
  Receipt Date: 20190808
  Transmission Date: 20191004
  Serious: Yes (Hospitalization)
  Sender: FDA-Public Use
  Company Number: US-VIFOR (INTERNATIONAL) INC.-VIT-2019-04577

PATIENT
  Age: 75 Year
  Sex: Female

DRUGS (1)
  1. VELTASSA [Suspect]
     Active Substance: PATIROMER
     Indication: HYPERKALAEMIA
     Route: 048
     Dates: start: 20190319, end: 2019

REACTIONS (4)
  - Renal disorder [Unknown]
  - Inability to afford medication [Unknown]
  - Dehydration [Unknown]
  - Hypertension [Unknown]

NARRATIVE: CASE EVENT DATE: 2019
